FAERS Safety Report 19453291 (Version 1)
Quarter: 2021Q2

REPORT INFORMATION
  Report Type: Report from Study
  Country: AR (occurrence: AR)
  Receive Date: 20210623
  Receipt Date: 20210623
  Transmission Date: 20210717
  Serious: Yes (Other)
  Sender: FDA-Public Use
  Company Number: AR-JNJFOC-20210638677

PATIENT
  Age: 60 Year
  Sex: Female

DRUGS (1)
  1. SPRAVATO [Suspect]
     Active Substance: ESKETAMINE
     Indication: DEPRESSION

REACTIONS (5)
  - Gait disturbance [Unknown]
  - Hypertension [Unknown]
  - Fear of death [Unknown]
  - Crying [Unknown]
  - Major depression [Unknown]

NARRATIVE: CASE EVENT DATE: 20210615
